FAERS Safety Report 25433382 (Version 1)
Quarter: 2025Q2

REPORT INFORMATION
  Report Type: Spontaneous
  Country: PL (occurrence: PL)
  Receive Date: 20250613
  Receipt Date: 20250613
  Transmission Date: 20250716
  Serious: Yes (Life-Threatening, Hospitalization, Other)
  Sender: AUROBINDO
  Company Number: PL-URPL-DML-MLP.4401.1.74.2025

PATIENT
  Age: 60 Year
  Sex: Female
  Weight: 72 kg

DRUGS (5)
  1. CARBOPLATIN [Suspect]
     Active Substance: CARBOPLATIN
     Indication: Ovarian cancer
     Route: 042
     Dates: start: 20250325, end: 20250325
  2. CLEMASTINE [Concomitant]
     Active Substance: CLEMASTINE
     Indication: Ovarian cancer
     Route: 048
     Dates: start: 20250325, end: 20250325
  3. DEXAMETHASONE [Concomitant]
     Active Substance: DEXAMETHASONE
     Indication: Ovarian cancer
     Route: 042
     Dates: start: 20250325, end: 20250325
  4. Famotydyna ranigast [Concomitant]
     Indication: Ovarian cancer
     Route: 048
     Dates: start: 20250325, end: 20250325
  5. ONDANSETRON [Concomitant]
     Active Substance: ONDANSETRON
     Indication: Ovarian cancer
     Route: 042
     Dates: start: 20250325, end: 20250325

REACTIONS (6)
  - Loss of consciousness [Recovering/Resolving]
  - Chest discomfort [Recovering/Resolving]
  - Dyspnoea [Recovering/Resolving]
  - Hypoaesthesia [Recovering/Resolving]
  - Hyperhidrosis [Recovering/Resolving]
  - Pallor [Recovering/Resolving]

NARRATIVE: CASE EVENT DATE: 20250325
